FAERS Safety Report 22979623 (Version 2)
Quarter: 2023Q4

REPORT INFORMATION
  Report Type: Report from Study
  Country: US (occurrence: US)
  Receive Date: 20230925
  Receipt Date: 20231025
  Transmission Date: 20240110
  Serious: Yes (Hospitalization, Other)
  Sender: FDA-Public Use
  Company Number: US-ARGENX-2023-ARGX-US000731

PATIENT

DRUGS (3)
  1. VYVGART [Suspect]
     Active Substance: EFGARTIGIMOD ALFA-FCAB
     Indication: Myasthenia gravis
     Dosage: UNK
     Route: 042
  2. LORAZEPAM [Concomitant]
     Active Substance: LORAZEPAM
     Indication: Product used for unknown indication
  3. MORPHINE [Concomitant]
     Active Substance: MORPHINE
     Indication: Product used for unknown indication

REACTIONS (12)
  - Pneumonia [Recovered/Resolved]
  - Thrombosis [Unknown]
  - Respiration abnormal [Unknown]
  - Bone cancer [Unknown]
  - Lung carcinoma cell type unspecified stage IV [Unknown]
  - Hepatic cancer [Unknown]
  - Nephrolithiasis [Not Recovered/Not Resolved]
  - Fatigue [Unknown]
  - Sleep apnoea syndrome [Unknown]
  - Dysphonia [Recovering/Resolving]
  - Dehydration [Unknown]
  - Feeding disorder [Unknown]

NARRATIVE: CASE EVENT DATE: 20230630
